FAERS Safety Report 9104431 (Version 2)
Quarter: 2013Q1

REPORT INFORMATION
  Report Type: Report from Study
  Country: DE (occurrence: DE)
  Receive Date: 20130220
  Receipt Date: 20130306
  Transmission Date: 20140127
  Serious: Yes (Other)
  Sender: FDA-Public Use
  Company Number: DE-ROCHE-1192551

PATIENT
  Sex: Female

DRUGS (3)
  1. RANIBIZUMAB [Suspect]
     Indication: AGE-RELATED MACULAR DEGENERATION
     Route: 050
     Dates: start: 20120912
  2. RANIBIZUMAB [Suspect]
     Route: 065
     Dates: start: 20121010
  3. RANIBIZUMAB [Suspect]
     Route: 065
     Dates: start: 20121114

REACTIONS (2)
  - Retinal scar [Not Recovered/Not Resolved]
  - Retinal pigment epithelial tear [Unknown]
